FAERS Safety Report 21037555 (Version 1)
Quarter: 2022Q3

REPORT INFORMATION
  Report Type: Other
  Country: CA (occurrence: CA)
  Receive Date: 20220703
  Receipt Date: 20220703
  Transmission Date: 20221026
  Serious: Yes (Other)
  Sender: FDA-Public Use
  Company Number: CA-APOTEX-2022AP009779

PATIENT
  Age: 6 Year
  Sex: Male

DRUGS (3)
  1. RISPERIDONE [Suspect]
     Active Substance: RISPERIDONE
     Indication: Product used for unknown indication
     Dosage: UNK
     Route: 065
  2. CLONIDINE [Concomitant]
     Active Substance: CLONIDINE
     Indication: Product used for unknown indication
     Dosage: UNK
     Route: 065
  3. DYMISTA [Concomitant]
     Active Substance: AZELASTINE HYDROCHLORIDE\FLUTICASONE PROPIONATE
     Indication: Product used for unknown indication
     Dosage: UNK, QD
     Route: 065

REACTIONS (15)
  - Immunodeficiency [Unknown]
  - Breathing-related sleep disorder [Unknown]
  - Ear disorder [Unknown]
  - Haematochezia [Unknown]
  - Lymphoid tissue hyperplasia [Unknown]
  - Natural killer cell count decreased [Unknown]
  - Primary ciliary dyskinesia [Unknown]
  - Oesophagitis [Unknown]
  - Sinusitis [Unknown]
  - Nasal congestion [Unknown]
  - Insomnia [Unknown]
  - Apnoea [Unknown]
  - Hypopnoea [Unknown]
  - Dysphonia [Unknown]
  - Cough [Unknown]
